FAERS Safety Report 10022552 (Version 2)
Quarter: 2014Q1

REPORT INFORMATION
  Report Type: Report from Study
  Country: CA (occurrence: CA)
  Receive Date: 20140319
  Receipt Date: 20140319
  Transmission Date: 20141002
  Serious: Yes (Hospitalization, Other)
  Sender: FDA-Public Use
  Company Number: CA-ALEXION PHARMACEUTICALS INC.-A201303563

PATIENT
  Sex: 0

DRUGS (5)
  1. SOLIRIS [Suspect]
     Indication: HAEMOLYTIC URAEMIC SYNDROME
     Dosage: 600 MG, QW
     Route: 042
     Dates: start: 20121129, end: 20121204
  2. SOLIRIS [Suspect]
     Dosage: 300 MG, Q2W
     Route: 042
     Dates: start: 20121204
  3. ARANESP [Concomitant]
     Indication: HORMONE THERAPY
     Dosage: 40 ?G, QW
     Route: 058
     Dates: start: 20100108
  4. ENALAPRIL [Concomitant]
     Indication: MALIGNANT HYPERTENSION
     Dosage: 5 MG, QD
     Route: 048
     Dates: start: 20100108
  5. AMLODIPINE [Concomitant]
     Indication: MALIGNANT HYPERTENSION
     Dosage: 5 MG, QD
     Route: 048
     Dates: start: 20100108

REACTIONS (5)
  - Medical device complication [Recovered/Resolved]
  - Anuria [Not Recovered/Not Resolved]
  - Renal transplant [Recovered/Resolved]
  - Haemorrhage [Recovered/Resolved]
  - Post procedural complication [Unknown]
